FAERS Safety Report 8156218-8 (Version None)
Quarter: 2012Q1

REPORT INFORMATION
  Report Type: 
  Country: None (occurrence: None)
  Receive Date: 20120222
  Receipt Date: 20120216
  Transmission Date: 20120608
  Serious: Yes (Other)
  Sender: FDA-Public Use
  Company Number: US-PFIZER INC-2012043093

PATIENT
  Sex: Female

DRUGS (1)
  1. LO/OVRAL [Suspect]
     Dosage: UNK

REACTIONS (4)
  - EMOTIONAL DISORDER [None]
  - HYPERHIDROSIS [None]
  - HAEMORRHAGE [None]
  - INSOMNIA [None]
